FAERS Safety Report 7494566-5 (Version None)
Quarter: 2011Q2

REPORT INFORMATION
  Report Type: 
  Country: None (occurrence: None)
  Receive Date: 20110520
  Receipt Date: 20110513
  Transmission Date: 20111010
  Serious: Yes (Other)
  Sender: FDA-Public Use
  Company Number: PHFR2011GB01498

PATIENT
  Sex: Male
  Weight: 63 kg

DRUGS (2)
  1. EXJADE [Suspect]
     Dosage: 20 MG/KG PER DAY
     Route: 048
     Dates: start: 20100801
  2. EXJADE [Suspect]
     Dosage: UNK DF, UNK
     Route: 058

REACTIONS (3)
  - GASTROINTESTINAL DISORDER [None]
  - ABDOMINAL PAIN UPPER [None]
  - DIARRHOEA [None]
